FAERS Safety Report 25519719 (Version 2)
Quarter: 2025Q3

REPORT INFORMATION
  Report Type: Spontaneous
  Country: GB (occurrence: GB)
  Receive Date: 20250704
  Receipt Date: 20250809
  Transmission Date: 20251020
  Serious: Yes (Hospitalization, Other)
  Sender: ALEXION PHARMACEUTICALS
  Company Number: None

PATIENT
  Age: 63 Year
  Sex: Male

DRUGS (11)
  1. OMEPRAZOLE [Suspect]
     Active Substance: OMEPRAZOLE
     Dosage: 20 MICROGRAM, QD
     Dates: start: 20240702, end: 20240703
  2. ATORVASTATIN [Suspect]
     Active Substance: ATORVASTATIN
     Indication: Adverse drug reaction
     Dosage: 20 MICROGRAM, QD
     Dates: start: 20240702, end: 20240703
  3. VAXZEVRIA [Suspect]
     Active Substance: AZD-1222
     Route: 065
  4. VAXZEVRIA [Suspect]
     Active Substance: AZD-1222
  5. PREDNISOLONE [Concomitant]
     Active Substance: PREDNISOLONE
  6. DOXYCYCLINE [Concomitant]
     Active Substance: DOXYCYCLINE
  7. ASPIRIN [Concomitant]
     Active Substance: ASPIRIN
  8. NIFEDIPINE [Concomitant]
     Active Substance: NIFEDIPINE
  9. BUDESONIDE\FORMOTEROL FUMARATE [Concomitant]
     Active Substance: BUDESONIDE\FORMOTEROL FUMARATE
  10. UMECLIDINIUM [Concomitant]
     Active Substance: UMECLIDINIUM
  11. ALBUTEROL [Concomitant]
     Active Substance: ALBUTEROL

REACTIONS (1)
  - Testicular infarction [Recovered/Resolved]
